FAERS Safety Report 9451085 (Version 1)
Quarter: 2013Q3

REPORT INFORMATION
  Report Type: Spontaneous
  Country: JP (occurrence: JP)
  Receive Date: 20130809
  Receipt Date: 20130809
  Transmission Date: 20140515
  Serious: Yes (Other)
  Sender: FDA-Public Use
  Company Number: JP-ABBOTT-13P-087-1112423-00

PATIENT
  Age: 83 Year
  Sex: Male
  Weight: 42.5 kg

DRUGS (6)
  1. HUMIRA [Suspect]
     Indication: RHEUMATOID ARTHRITIS
     Route: 058
     Dates: start: 20100315, end: 20130612
  2. METHOTREXATE [Concomitant]
     Indication: RHEUMATOID ARTHRITIS
     Route: 048
     Dates: start: 20120201, end: 20130712
  3. PREDNISOLONE [Concomitant]
     Indication: RHEUMATOID ARTHRITIS
     Route: 048
     Dates: start: 20100315
  4. PREDNISOLONE [Concomitant]
     Route: 048
     Dates: start: 20120201
  5. ALOGLIPTIN BENZOATE [Concomitant]
     Indication: DIABETES MELLITUS
     Route: 048
     Dates: start: 20120502, end: 20130529
  6. ANAGLIPTIN [Concomitant]
     Indication: DIABETES MELLITUS
     Route: 048
     Dates: start: 20130529

REACTIONS (5)
  - Pancytopenia [Recovered/Resolved]
  - Red blood cell morphology abnormal [Unknown]
  - Myelodysplastic syndrome [Unknown]
  - Blood folate decreased [Unknown]
  - Deficiency anaemia [Unknown]
